FAERS Safety Report 24972079 (Version 1)
Quarter: 2025Q1

REPORT INFORMATION
  Report Type: Spontaneous
  Country: US (occurrence: US)
  Receive Date: 20250214
  Receipt Date: 20250214
  Transmission Date: 20250408
  Serious: No
  Sender: GALDERMA
  Company Number: US-GALDERMA-US2025001571

PATIENT

DRUGS (5)
  1. PROACTIV MD ADAPALENE ACNE TREATMENT [Suspect]
     Active Substance: ADAPALENE
     Indication: Acne
     Route: 061
     Dates: start: 2011, end: 2023
  2. PROACTIV SKIN PURIFYING MASK [Concomitant]
     Active Substance: SULFUR
     Indication: Acne
     Route: 061
     Dates: start: 2011, end: 2023
  3. PROACTIV SKIN PURIFYING MASK [Concomitant]
     Active Substance: SULFUR
     Route: 061
     Dates: start: 2011, end: 2023
  4. COSMETICS [Concomitant]
     Active Substance: COSMETICS
     Indication: Acne
     Route: 061
     Dates: start: 2011, end: 2023
  5. COSMETICS [Concomitant]
     Active Substance: COSMETICS
     Route: 061
     Dates: start: 2011, end: 2023

REACTIONS (3)
  - Dry skin [Recovering/Resolving]
  - Skin irritation [Recovering/Resolving]
  - Sensitive skin [Recovering/Resolving]
